FAERS Safety Report 7242189-5 (Version None)
Quarter: 2011Q1

REPORT INFORMATION
  Report Type: 
  Country: None (occurrence: None)
  Receive Date: 20110124
  Receipt Date: 20110110
  Transmission Date: 20110831
  Serious: Yes (Hospitalization, Other)
  Sender: FDA-Public Use
  Company Number: FR-GENENTECH-311847

PATIENT
  Sex: Male

DRUGS (14)
  1. LUCENTIS [Suspect]
     Dosage: UNK
     Route: 031
     Dates: start: 20090625
  2. LUCENTIS [Suspect]
     Dosage: UNK
     Route: 031
     Dates: start: 20100903
  3. LUCENTIS [Suspect]
     Indication: PRODUCT USED FOR UNKNOWN INDICATION
     Dosage: UNK
     Route: 031
     Dates: start: 20080721
  4. LUCENTIS [Suspect]
     Dosage: UNK
     Route: 031
     Dates: start: 20080825
  5. LUCENTIS [Suspect]
     Dosage: UNK
     Route: 031
     Dates: start: 20100428
  6. ZOCOR [Concomitant]
     Indication: PRODUCT USED FOR UNKNOWN INDICATION
  7. VASTAREL [Concomitant]
     Indication: PRODUCT USED FOR UNKNOWN INDICATION
  8. XATRAL [Concomitant]
     Indication: PRODUCT USED FOR UNKNOWN INDICATION
  9. LUCENTIS [Suspect]
     Dosage: UNK
     Route: 031
     Dates: start: 20090502
  10. LUCENTIS [Suspect]
     Dosage: UNK
     Route: 031
     Dates: start: 20100602
  11. FLUINDIONE [Concomitant]
     Indication: PRODUCT USED FOR UNKNOWN INDICATION
  12. LUCENTIS [Suspect]
     Dosage: UNK
     Route: 031
     Dates: start: 20081009
  13. LUCENTIS [Suspect]
     Dosage: UNK
     Route: 031
     Dates: start: 20090727
  14. FLECAINE [Concomitant]
     Indication: PRODUCT USED FOR UNKNOWN INDICATION

REACTIONS (1)
  - TRANSIENT ISCHAEMIC ATTACK [None]
